FAERS Safety Report 14874195 (Version 1)
Quarter: 2018Q2

REPORT INFORMATION
  Report Type: Spontaneous
  Country: US (occurrence: US)
  Receive Date: 20180424
  Receipt Date: 20180424
  Transmission Date: 20180711
  Serious: No
  Sender: FDA-Public Use
  Company Number: None

PATIENT
  Age: 79 Year
  Sex: Male

DRUGS (1)
  1. HUMIRA [Suspect]
     Active Substance: ADALIMUMAB
     Indication: PSORIASIS
     Dosage: 40MG PEN 2 PENS (80MG) ON DAY 1, THEN ONE PEN (40MG) DAY SUBCUTANEOUSLY
     Route: 058
     Dates: start: 20180323, end: 20180420

REACTIONS (1)
  - Rash [None]
